FAERS Safety Report 15452011 (Version 1)
Quarter: 2018Q4

REPORT INFORMATION
  Report Type: Report from Study
  Country: ES (occurrence: ES)
  Receive Date: 20181001
  Receipt Date: 20181001
  Transmission Date: 20190204
  Serious: Yes (Hospitalization)
  Sender: FDA-Public Use
  Company Number: ES-PFIZER INC-2018391346

PATIENT
  Age: 85 Year
  Sex: Male

DRUGS (4)
  1. AMLODIPINE BESILATE [Suspect]
     Active Substance: AMLODIPINE BESYLATE
     Indication: HYPERTENSION
     Dosage: 5 MG, DAILY
     Route: 048
     Dates: start: 20141201, end: 20170830
  2. ESIDREX [Suspect]
     Active Substance: HYDROCHLOROTHIAZIDE
     Indication: HYPERTENSION
     Dosage: 12.5 MG, DAILY ((0.5 TABLET IN THE MORNING)
     Route: 048
     Dates: start: 20091203, end: 20170830
  3. AMLODIPINE BESILATE/VALSARTAN [Suspect]
     Active Substance: AMLODIPINE BESYLATE\VALSARTAN
     Indication: HYPERTENSION
     Dosage: 5/160 MG, DAILY
     Route: 048
     Dates: start: 20170627, end: 20170830
  4. TARDYFERON [Concomitant]
     Active Substance: FERROUS SULFATE
     Indication: ANAEMIA
     Dosage: 1 DF, DAILY
     Route: 048
     Dates: start: 20170627

REACTIONS (1)
  - Acute kidney injury [Not Recovered/Not Resolved]

NARRATIVE: CASE EVENT DATE: 20170830
